FAERS Safety Report 4292039-4 (Version None)
Quarter: 2004Q1

REPORT INFORMATION
  Report Type: 
  Country: None (occurrence: None)
  Receive Date: 20040210
  Receipt Date: 20040210
  Transmission Date: 20041129
  Serious: Yes (Other)
  Sender: FDA-Public Use
  Company Number: None

PATIENT

DRUGS (2)
  1. ALBUMIN (HUMAN) [Suspect]
     Indication: SURGERY
     Dosage: 500 ML PRN INTRAVENOUS
     Dates: start: 20040112, end: 20040112
  2. ALBUMIN (HUMAN) [Suspect]
     Indication: SURGERY
     Dosage: 500ML PRN INTRAVENOUS
     Route: 042
     Dates: start: 20040112, end: 20040112

REACTIONS (2)
  - DEVICE FAILURE [None]
  - PHARMACEUTICAL PRODUCT COMPLAINT [None]
